FAERS Safety Report 4350525-2 (Version None)
Quarter: 2004Q2

REPORT INFORMATION
  Report Type: 
  Country: None (occurrence: None)
  Receive Date: 20040429
  Receipt Date: 20040429
  Transmission Date: 20050107
  Serious: Yes (Disabling)
  Sender: FDA-Public Use
  Company Number: None

PATIENT
  Age: 14 Year
  Sex: Male
  Weight: 63.5036 kg

DRUGS (1)
  1. LEVAQUIN [Suspect]
     Indication: BRONCHITIS
     Dosage: 1 TABLET ONCE DAILY ORAL
     Route: 048
     Dates: start: 20040409, end: 20040425

REACTIONS (11)
  - ANXIETY [None]
  - ARTHRALGIA [None]
  - ARTHRITIS [None]
  - ARTHROPATHY [None]
  - HYPERHIDROSIS [None]
  - INSOMNIA [None]
  - JOINT SWELLING [None]
  - MUSCLE CRAMP [None]
  - MYALGIA [None]
  - PAIN [None]
  - PALPITATIONS [None]
